FAERS Safety Report 11309274 (Version 1)
Quarter: 2015Q3

REPORT INFORMATION
  Report Type: Spontaneous
  Country: US (occurrence: US)
  Receive Date: 20150724
  Receipt Date: 20150724
  Transmission Date: 20151125
  Serious: No
  Sender: FDA-Public Use
  Company Number: US-ABBVIE-14P-163-1261847-00

PATIENT
  Age: 39 Year
  Sex: Female
  Weight: 79.45 kg

DRUGS (5)
  1. SYNTHROID [Suspect]
     Active Substance: LEVOTHYROXINE SODIUM
     Indication: AUTOIMMUNE THYROIDITIS
     Route: 048
     Dates: start: 201404, end: 20140707
  2. SYNTHROID [Suspect]
     Active Substance: LEVOTHYROXINE SODIUM
     Indication: IMMUNOSUPPRESSANT DRUG THERAPY
  3. VALTREX [Concomitant]
     Active Substance: VALACYCLOVIR HYDROCHLORIDE
     Indication: HERPES ZOSTER
  4. VALTREX [Concomitant]
     Active Substance: VALACYCLOVIR HYDROCHLORIDE
     Indication: IMMUNOSUPPRESSANT DRUG THERAPY
  5. VALTREX [Concomitant]
     Active Substance: VALACYCLOVIR HYDROCHLORIDE
     Indication: CONJUNCTIVITIS

REACTIONS (15)
  - Migraine [Recovered/Resolved]
  - Neck pain [Recovered/Resolved]
  - Influenza [Recovered/Resolved]
  - Chest discomfort [Recovered/Resolved]
  - Visual impairment [Recovered/Resolved]
  - Pain [Recovered/Resolved]
  - Tachyphrenia [Recovered/Resolved]
  - Tri-iodothyronine decreased [Unknown]
  - Dizziness [Recovered/Resolved]
  - Hormone level abnormal [Recovered/Resolved]
  - Thyroxine decreased [Unknown]
  - Metrorrhagia [Recovered/Resolved]
  - Fatigue [Recovering/Resolving]
  - Conjunctivitis [Recovered/Resolved]
  - Palpitations [Recovered/Resolved]

NARRATIVE: CASE EVENT DATE: 201406
